FAERS Safety Report 9512471 (Version 1)
Quarter: 2013Q1

REPORT INFORMATION
  Report Type: Spontaneous
  Country: US (occurrence: None)
  Receive Date: 20130305
  Receipt Date: 20130305
  Transmission Date: 20140127
  Serious: Yes (Other)
  Sender: FDA-Public Use
  Company Number: 163-21880-12103206

PATIENT
  Age: 65 Year
  Sex: Female

DRUGS (2)
  1. REVLIMID [Suspect]
     Indication: PLASMA CELL MYELOMA
     Dosage: 1 IN 1 D
     Route: 048
     Dates: start: 200908, end: 2009
  2. ACYCLOVIR (ACYCLOVIR) (UNKNOWN) [Concomitant]

REACTIONS (4)
  - Muscle spasms [None]
  - Dry skin [None]
  - White blood cell count decreased [None]
  - Skin exfoliation [None]
